APPROVED DRUG PRODUCT: CYCLOSPORINE
Active Ingredient: CYCLOSPORINE
Strength: 100MG/ML
Dosage Form/Route: SOLUTION;ORAL
Application: A065133 | Product #001
Applicant: PHARMOBEDIENT CONSULTING
Approved: Sep 17, 2004 | RLD: No | RS: No | Type: DISCN